FAERS Safety Report 21411872 (Version 2)
Quarter: 2022Q4

REPORT INFORMATION
  Report Type: Spontaneous
  Country: US (occurrence: US)
  Receive Date: 20221005
  Receipt Date: 20221019
  Transmission Date: 20230113
  Serious: Yes (Hospitalization)
  Sender: FDA-Public Use
  Company Number: US-LUNDBECK-DKLU3045390

PATIENT
  Age: 1 Year
  Sex: Male
  Weight: 5.59 kg

DRUGS (3)
  1. SABRIL [Suspect]
     Active Substance: VIGABATRIN
     Indication: Infantile spasms
     Route: 048
     Dates: start: 202101
  2. SABRIL [Suspect]
     Active Substance: VIGABATRIN
     Indication: Epilepsy
     Route: 048
     Dates: start: 202101
  3. SABRIL [Suspect]
     Active Substance: VIGABATRIN
     Indication: Brain malformation
     Route: 048
     Dates: start: 202101

REACTIONS (5)
  - Tracheitis [Recovered/Resolved]
  - Seizure [Recovered/Resolved]
  - Pseudomonas infection [Recovered/Resolved]
  - Acinetobacter infection [Recovered/Resolved]
  - Staphylococcal infection [Recovered/Resolved]

NARRATIVE: CASE EVENT DATE: 20220919
